FAERS Safety Report 4509601-3 (Version None)
Quarter: 2004Q4

REPORT INFORMATION
  Report Type: 
  Country: None (occurrence: None)
  Receive Date: 20041119
  Receipt Date: 20041115
  Transmission Date: 20050328
  Serious: Yes (Death, Hospitalization)
  Sender: FDA-Public Use
  Company Number: T04-USA-07614-01

PATIENT
  Age: 84 Year
  Sex: Male

DRUGS (8)
  1. MEMANTINE (OPEN LABEL, PHASE D) (MEMANTINE) [Suspect]
     Indication: DEMENTIA ALZHEIMER'S TYPE
     Dosage: 20 MG QD PO
     Route: 048
     Dates: start: 20020510, end: 20041107
  2. MEMANTINE (OPEN LABEL, PHASE C) (MEMANTINE) [Suspect]
     Indication: DEMENTIA ALZHEIMER'S TYPE
  3. MEMANTINE (OPEN LABEL, PHASE B) (MEMANTINE) [Suspect]
     Indication: DEMENTIA ALZHEIMER'S TYPE
  4. MEMANTINE HCL [Suspect]
     Indication: DEMENTIA ALZHEIMER'S TYPE
  5. FUROSEMIDE [Concomitant]
  6. POTASSIUM [Concomitant]
  7. ZOLPIDEM TARTRATE [Concomitant]
  8. ERTHROMYCIN (ERTHROMYCIN) [Concomitant]

REACTIONS (3)
  - INTESTINAL OBSTRUCTION [None]
  - POST PROCEDURAL COMPLICATION [None]
  - PULMONARY EMBOLISM [None]
